FAERS Safety Report 6315202-7 (Version None)
Quarter: 2009Q3

REPORT INFORMATION
  Report Type: 
  Country: None (occurrence: None)
  Receive Date: 20090819
  Receipt Date: 20090722
  Transmission Date: 20100115
  Serious: Yes (Hospitalization)
  Sender: FDA-Public Use
  Company Number: IT-MERCK-0907ITA00037

PATIENT
  Age: 30 Year
  Sex: Male

DRUGS (7)
  1. SINGULAIR [Suspect]
     Indication: ASTHMA
     Route: 048
     Dates: start: 20010101, end: 20070730
  2. PREDNISONE [Suspect]
     Indication: ASTHMA
     Route: 065
     Dates: start: 20010101, end: 20070901
  3. BUDESONIDE AND FORMOTEROL FUMARATE [Suspect]
     Indication: ASTHMA
     Route: 065
     Dates: start: 20010101
  4. MOMETASONE FUROATE [Suspect]
     Indication: ASTHMA
     Route: 065
     Dates: start: 20010101, end: 20070901
  5. TIOTROPIUM BROMIDE [Suspect]
     Indication: ASTHMA
     Route: 065
     Dates: start: 20010101, end: 20070901
  6. OMALIZUMAB [Concomitant]
     Indication: ASTHMA
     Route: 065
     Dates: start: 20061201, end: 20080101
  7. ALBUTEROL [Suspect]
     Indication: ASTHMA
     Route: 065
     Dates: start: 20010101, end: 20070901

REACTIONS (3)
  - ASTHMA [None]
  - DRUG INEFFECTIVE [None]
  - HYPOVENTILATION [None]
